FAERS Safety Report 9529931 (Version 1)
Quarter: 2013Q1

REPORT INFORMATION
  Report Type: Spontaneous
  Country: US (occurrence: None)
  Receive Date: 20130329
  Receipt Date: 20130329
  Transmission Date: 20140127
  Serious: Yes (Other)
  Sender: FDA-Public Use
  Company Number: 1000042817

PATIENT
  Age: 86 Year
  Sex: Female

DRUGS (11)
  1. LINZESS [Suspect]
     Indication: CONSTIPATION
     Dosage: 145 MCG (145 MCG, 1 IN 1 D), ORAL
     Route: 048
     Dates: start: 20130218
  2. SYNTHROID (LEVOTHYROXINE SODIUM) (LEVOTHYROXINE SODIUM) [Concomitant]
  3. LABETALOL (LABETALOL) (LABETALOL) [Concomitant]
  4. DIGOXIN (DIGOXIN) (DIGOXIN) [Concomitant]
  5. CALCIUM (CALCIUM) (CALCIUM) [Concomitant]
  6. AMLODIPINE (AMLODIPINE) (AMLODIPINE) [Concomitant]
  7. BENICAR (OLMESARTAN MEDOXOMIL) (OLMESARTAN MEDOXOMIL) [Concomitant]
  8. ASPIRIN (ACETYLSALICYLIC ACID( (ACETYLSALICYLIC ACID) [Concomitant]
  9. VITAMIN D (VITAMIN D) (VITAMIN D) [Concomitant]
  10. CLONIDINE (CLONIDINE) (CLONIDINE) [Concomitant]
  11. NAMENDA (MEMANTINE HYDROCHLORIDE) (MEMANTINE HYDROCHLORIDE) [Concomitant]

REACTIONS (1)
  - Abdominal pain [None]
